FAERS Safety Report 5523170-0 (Version None)
Quarter: 2007Q4

REPORT INFORMATION
  Report Type: 
  Country: None (occurrence: None)
  Receive Date: 20071116
  Receipt Date: 20071102
  Transmission Date: 20080405
  Serious: Yes (Disabling)
  Sender: FDA-Public Use
  Company Number: ABCAF-07-0964

PATIENT
  Age: 49 Year
  Sex: Female
  Weight: 68.9 kg

DRUGS (2)
  1. ABRAXANE [Suspect]
     Indication: BREAST CANCER METASTATIC
     Dosage: ONE DOSE (450 MG) PRIOR TO SAE ON ON 23-OCT-07 (260 MG/M2,Q 3 WKS.)
     Dates: start: 20071023, end: 20071023
  2. TYKERB [Concomitant]

REACTIONS (1)
  - POLYNEUROPATHY [None]
